FAERS Safety Report 9751607 (Version 1)
Quarter: 2013Q4

REPORT INFORMATION
  Report Type: Spontaneous
  Country: NL (occurrence: NL)
  Receive Date: 20131212
  Receipt Date: 20131212
  Transmission Date: 20140711
  Serious: Yes (Congenital Anomaly)
  Sender: FDA-Public Use
  Company Number: NL-009507513-1312NLD005362

PATIENT
  Sex: 0

DRUGS (5)
  1. MAXALT SMELT 10 MG [Suspect]
     Indication: MIGRAINE
     Dosage: 2 TIMES PER 1 MONTHS 1 0 MG
     Route: 064
  2. VENLAFAXINE HYDROCHLORIDE [Interacting]
     Indication: DEPRESSION
     Dosage: 1 TIMES PER 1 DAYS 37.5 MG
     Route: 064
  3. ACETAMINOPHEN [Concomitant]
     Dosage: 2 TIMES PER 1 WEEKS 1 000 MG
     Route: 064
  4. IBUPROFEN [Concomitant]
     Dosage: 1 TIMES PER 1 WEEKS 400 MG
     Route: 064
  5. ASPIRINE [Concomitant]
     Dosage: 1 TIMES PER 1 WEEKS 1 000 MG
     Route: 064

REACTIONS (2)
  - Hypoplastic right heart syndrome [Unknown]
  - Exposure via father [Unknown]
